FAERS Safety Report 11319646 (Version 1)
Quarter: 2015Q3

REPORT INFORMATION
  Report Type: Spontaneous
  Country: US (occurrence: None)
  Receive Date: 20150728
  Receipt Date: 20150728
  Transmission Date: 20151125
  Serious: No
  Sender: FDA-Public Use
  Company Number: None

PATIENT
  Age: 39 Year
  Sex: Female
  Weight: 53.52 kg

DRUGS (4)
  1. HYOSCINE [Concomitant]
     Active Substance: SCOPOLAMINE
  2. PROPOFOL. [Concomitant]
     Active Substance: PROPOFOL
  3. DOMPERIDONE [Suspect]
     Active Substance: DOMPERIDONE
     Indication: IMPAIRED GASTRIC EMPTYING
     Dosage: 10MG?1 PILL?BEFORE EACH MEAL 4-5 XS?MY MOUTH??THERAPY ?1 YEAR ?HAS TO TAPER DOWN
     Route: 048
  4. PLAQUENIL [Concomitant]
     Active Substance: HYDROXYCHLOROQUINE SULFATE

REACTIONS (4)
  - Ventricular extrasystoles [None]
  - Drug withdrawal syndrome [None]
  - Tremor [None]
  - Crying [None]

NARRATIVE: CASE EVENT DATE: 20150709
